FAERS Safety Report 5997350-4 (Version None)
Quarter: 2008Q4

REPORT INFORMATION
  Report Type: 
  Country: None (occurrence: None)
  Receive Date: 20081210
  Receipt Date: 20081117
  Transmission Date: 20090506
  Serious: Yes (Hospitalization, Other)
  Sender: FDA-Public Use
  Company Number: 2008096171

PATIENT
  Age: 26 Year
  Sex: Female

DRUGS (3)
  1. FRAGMIN [Suspect]
     Dosage: 2500 I.U. (2500 I.U., 1 IN 1 D), SUBCUTANEOUS
     Route: 058
     Dates: start: 20071225, end: 20080601
  2. ACETYLSALICYLIC ACID SRT [Concomitant]
  3. FOLIC ACID [Concomitant]

REACTIONS (5)
  - ABORTION [None]
  - APPENDICITIS [None]
  - INJECTION SITE IRRITATION [None]
  - INJECTION SITE PAIN [None]
  - INTRA-UTERINE DEATH [None]
